FAERS Safety Report 9604749 (Version 1)
Quarter: 2013Q4

REPORT INFORMATION
  Report Type: Spontaneous
  Country: US (occurrence: US)
  Receive Date: 20131008
  Receipt Date: 20131008
  Transmission Date: 20140711
  Serious: No
  Sender: FDA-Public Use
  Company Number: US-PFIZER INC-2013285373

PATIENT
  Sex: 0

DRUGS (2)
  1. CISPLATIN [Suspect]
     Dosage: UNK
  2. VINCRISTINE [Suspect]
     Dosage: UNK

REACTIONS (1)
  - Neuropathy peripheral [Unknown]
